FAERS Safety Report 5618215-3 (Version None)
Quarter: 2008Q1

REPORT INFORMATION
  Report Type: 
  Country: None (occurrence: None)
  Receive Date: 20080207
  Receipt Date: 20080130
  Transmission Date: 20080703
  Serious: Yes (Other)
  Sender: FDA-Public Use
  Company Number: SG-JNJFOC-20080200098

PATIENT
  Age: 59 Year
  Sex: Female

DRUGS (7)
  1. CAELYX [Suspect]
     Indication: OVARIAN CANCER RECURRENT
     Route: 042
  2. METFORMIN HCL [Concomitant]
     Indication: HYPERTENSION
     Route: 065
  3. METFORMIN HCL [Concomitant]
     Indication: TYPE 2 DIABETES MELLITUS
     Route: 065
  4. CAPTOPRIL [Concomitant]
     Indication: HYPERTENSION
     Route: 065
  5. CAPTOPRIL [Concomitant]
     Indication: TYPE 2 DIABETES MELLITUS
     Route: 065
  6. HYDROCHLOROTHIAZIDE [Concomitant]
     Indication: HYPERTENSION
     Route: 065
  7. HYDROCHLOROTHIAZIDE [Concomitant]
     Indication: TYPE 2 DIABETES MELLITUS
     Route: 065

REACTIONS (7)
  - CHEST PAIN [None]
  - DYSPNOEA [None]
  - FLUSHING [None]
  - HYPERSENSITIVITY [None]
  - HYPERTENSION [None]
  - SPEECH DISORDER [None]
  - WHEEZING [None]
